FAERS Safety Report 23344391 (Version 1)
Quarter: 2023Q4

REPORT INFORMATION
  Report Type: Report from Study
  Country: US (occurrence: US)
  Receive Date: 20231228
  Receipt Date: 20231228
  Transmission Date: 20240109
  Serious: Yes (Other)
  Sender: FDA-Public Use
  Company Number: US-ABBVIE-5560871

PATIENT
  Sex: Female

DRUGS (1)
  1. HUMIRA [Suspect]
     Active Substance: ADALIMUMAB
     Indication: Colitis ulcerative
     Dosage: STRENGTH: 40 MG
     Route: 058
     Dates: start: 20230322, end: 20231021

REACTIONS (3)
  - Haemorrhage [Recovered/Resolved]
  - Therapeutic product effect decreased [Unknown]
  - Drug resistance [Unknown]

NARRATIVE: CASE EVENT DATE: 20230101
